FAERS Safety Report 18214851 (Version 1)
Quarter: 2020Q3

REPORT INFORMATION
  Report Type: Spontaneous
  Country: US (occurrence: US)
  Receive Date: 20200831
  Receipt Date: 20200831
  Transmission Date: 20201103
  Serious: No
  Sender: FDA-Public Use
  Company Number: US-GALDERMA-US2020022618

PATIENT
  Sex: Female

DRUGS (1)
  1. EPIDUO FORTE [Suspect]
     Active Substance: ADAPALENE\BENZOYL PEROXIDE
     Indication: ACNE
     Dosage: 0.3/2.5%
     Route: 061

REACTIONS (4)
  - Erythema [Unknown]
  - Skin exfoliation [Unknown]
  - Skin burning sensation [Unknown]
  - Dry skin [Unknown]
